FAERS Safety Report 11152877 (Version 1)
Quarter: 2015Q2

REPORT INFORMATION
  Report Type: Spontaneous
  Country: CN (occurrence: None)
  Receive Date: 20150526
  Receipt Date: 20150526
  Transmission Date: 20150821
  Serious: Yes (Hospitalization, Other)
  Sender: FDA-Public Use
  Company Number: CN-2014VAL000412

PATIENT
  Age: 32 Year
  Sex: Female

DRUGS (3)
  1. MISOPROSTOL (MISOPROSTOL) (MISOPROSTOL) [Suspect]
     Active Substance: MISOPROSTOL
     Indication: PRODUCT USED FOR UNKNOWN INDICATION
  2. BROMOCRIPTINE MESYLATE (BROMOCRIPTINE MESYLATE) UNKNOWN [Suspect]
     Active Substance: BROMOCRIPTINE MESYLATE
     Indication: PRODUCT USED FOR UNKNOWN INDICATION
     Dosage: 2.5 MG, DAILY, UNTIL WEEK 4 OF PREGNANCY
     Route: 048
  3. MIFEPRISTONE [Suspect]
     Active Substance: MIFEPRISTONE
     Indication: PRODUCT USED FOR UNKNOWN INDICATION

REACTIONS (4)
  - Abortion induced [None]
  - Maternal exposure during pregnancy [None]
  - Cytomegalovirus infection [None]
  - Foetal death [None]
